FAERS Safety Report 5972032-3 (Version None)
Quarter: 2008Q4

REPORT INFORMATION
  Report Type: 
  Country: None (occurrence: None)
  Receive Date: 20081125
  Receipt Date: 20081106
  Transmission Date: 20090506
  Serious: Yes (Hospitalization)
  Sender: FDA-Public Use
  Company Number: 08-001773

PATIENT
  Age: 18 Year
  Sex: Female

DRUGS (1)
  1. DURICEF [Suspect]
     Indication: LYMPHADENOPATHY
     Dosage: CUTANEOUS
     Route: 003
     Dates: start: 20080101

REACTIONS (2)
  - GRAND MAL CONVULSION [None]
  - MALAISE [None]
